FAERS Safety Report 8482207-X (Version None)
Quarter: 2012Q3

REPORT INFORMATION
  Report Type: 
  Country: None (occurrence: None)
  Receive Date: 20120702
  Receipt Date: 20120625
  Transmission Date: 20120928
  Serious: Yes (Death)
  Sender: FDA-Public Use
  Company Number: JP-SANOFI-AVENTIS-2012SA045680

PATIENT
  Age: 87 Year
  Sex: Female

DRUGS (10)
  1. OLMESARTAN MEDOXOMIL [Concomitant]
     Route: 048
     Dates: end: 20110405
  2. LIPITOR [Concomitant]
     Route: 048
     Dates: end: 20110405
  3. APIDRA [Suspect]
     Indication: DIABETES MELLITUS
     Dosage: DOSE REPORTED AS MORNING 4U, NOON 4U, EVENING 2U
     Route: 058
     Dates: end: 20120405
  4. AMLODIPINE [Concomitant]
     Route: 048
     Dates: end: 20110405
  5. LANTUS [Concomitant]
     Indication: DIABETES MELLITUS
     Dosage: IN THE EVENING DOSE:8 UNIT(S)
     Route: 058
     Dates: end: 20110209
  6. ALENDRONATE SODIUM [Concomitant]
     Indication: PROPHYLAXIS
     Route: 048
     Dates: end: 20110405
  7. LANTUS [Concomitant]
     Dosage: IN THE EVENING DOSE:4 UNIT(S)
     Route: 058
     Dates: start: 20110210, end: 20110405
  8. CALBLOCK [Concomitant]
     Route: 048
     Dates: end: 20110405
  9. ASPIRIN [Concomitant]
     Dosage: STRENGTH: 100 MG
     Route: 048
     Dates: end: 20110405
  10. WARFARIN SODIUM [Concomitant]
     Route: 048
     Dates: end: 20110405

REACTIONS (1)
  - AORTIC VALVE STENOSIS [None]
